FAERS Safety Report 8808659 (Version 1)
Quarter: 2012Q4

REPORT INFORMATION
  Report Type: Spontaneous
  Country: US (occurrence: None)
  Receive Date: 20120921
  Receipt Date: 20120921
  Transmission Date: 20130627
  Serious: Yes (Death, Life-Threatening, Hospitalization)
  Sender: FDA-Public Use
  Company Number: 2012S1006095

PATIENT
  Sex: Female

DRUGS (1)
  1. FLEET PHOSPHO-SODA [Suspect]
     Indication: BOWEL PREPARATION
     Route: 048

REACTIONS (3)
  - Unresponsive to stimuli [None]
  - Renal failure [None]
  - Drug ineffective [None]
